FAERS Safety Report 13423423 (Version 2)
Quarter: 2017Q2

REPORT INFORMATION
  Report Type: Spontaneous
  Country: US (occurrence: US)
  Receive Date: 20170410
  Receipt Date: 20170412
  Transmission Date: 20170830
  Serious: Yes (Other)
  Sender: FDA-Public Use
  Company Number: US-VIFOR (INTERNATIONAL) INC.-VIT-2017-03702

PATIENT
  Age: 74 Year
  Sex: Male

DRUGS (24)
  1. VELTASSA [Suspect]
     Active Substance: PATIROMER
     Route: 048
     Dates: start: 2017
  2. FLONASE ALLERGY RELIEF [Concomitant]
     Active Substance: FLUTICASONE PROPIONATE
  3. VELTASSA [Suspect]
     Active Substance: PATIROMER
     Indication: HYPERKALAEMIA
     Route: 048
     Dates: start: 20160930
  4. CLONIDINE HYDROCHLORIDE. [Concomitant]
     Active Substance: CLONIDINE HYDROCHLORIDE
  5. FERROUS FUMARATE [Concomitant]
     Active Substance: FERROUS FUMARATE
  6. GLUCOSAMINE CHONDR 1500 COMPLX [Concomitant]
  7. AMLODIPINE BESILATE [Concomitant]
     Active Substance: AMLODIPINE BESYLATE
  8. ASPIRIN LOW DOSE [Concomitant]
     Active Substance: ASPIRIN
  9. MIRALAX [Concomitant]
     Active Substance: POLYETHYLENE GLYCOL 3350
  10. ISONIAZID. [Concomitant]
     Active Substance: ISONIAZID
  11. SODIUM BICARBONATE. [Concomitant]
     Active Substance: SODIUM BICARBONATE
  12. RIFAMPICIN [Concomitant]
     Active Substance: RIFAMPIN
  13. ETHAMBUTOL DIHYDROCHLORIDE [Concomitant]
     Active Substance: ETHAMBUTOL HYDROCHLORIDE
  14. CLOBETASOL PROPIONATE. [Concomitant]
     Active Substance: CLOBETASOL PROPIONATE
  15. IRON [Concomitant]
     Active Substance: IRON
  16. VITAMINS NOS [Concomitant]
     Active Substance: VITAMINS
  17. SYSTANE (HYPROMELLOSE 2910 (4000 MPA.S)) [Concomitant]
     Active Substance: HYPROMELLOSE 2910 (4000 MPA.S)
  18. HYDROXYCHLOROQUINE SULFATE. [Concomitant]
     Active Substance: HYDROXYCHLOROQUINE SULFATE
  19. CALCIUM 500 + D3 [Concomitant]
  20. FENOFIBRATE. [Concomitant]
     Active Substance: FENOFIBRATE
  21. PARACETAMOL [Concomitant]
     Active Substance: ACETAMINOPHEN
  22. OMEPRAZOLE. [Concomitant]
     Active Substance: OMEPRAZOLE
  23. VALSARTAN-HYDROCHLOROTHIAZIDE [Concomitant]
     Active Substance: HYDROCHLOROTHIAZIDE\VALSARTAN
  24. PYRAZINAMIDE. [Concomitant]
     Active Substance: PYRAZINAMIDE

REACTIONS (5)
  - Tuberculosis [Unknown]
  - Limb operation [Unknown]
  - Hypertension [Unknown]
  - Dizziness [Unknown]
  - Inappropriate schedule of drug administration [Unknown]

NARRATIVE: CASE EVENT DATE: 20170321
